FAERS Safety Report 4654494-7 (Version None)
Quarter: 2005Q2

REPORT INFORMATION
  Report Type: 
  Country: None (occurrence: None)
  Receive Date: 20050505
  Receipt Date: 20050505
  Transmission Date: 20051028
  Serious: No
  Sender: FDA-Public Use
  Company Number: None

PATIENT
  Age: 50 Year
  Sex: Female
  Weight: 74 kg

DRUGS (2)
  1. MAGNEVIST [Suspect]
     Indication: NUCLEAR MAGNETIC RESONANCE IMAGING
     Dosage: 17 ML
     Dates: start: 20050420
  2. MAGNEVIST [Suspect]
     Indication: SCAN WITH CONTRAST
     Dosage: 17 ML
     Dates: start: 20050420

REACTIONS (7)
  - ANAPHYLACTIC REACTION [None]
  - BURNING SENSATION [None]
  - CYANOSIS [None]
  - DYSPNOEA [None]
  - GENERALISED ERYTHEMA [None]
  - HYPOTENSION [None]
  - LUNG DISORDER [None]
